FAERS Safety Report 7121175-X (Version None)
Quarter: 2010Q4

REPORT INFORMATION
  Report Type: 
  Country: None (occurrence: None)
  Receive Date: 20101124
  Receipt Date: 20101110
  Transmission Date: 20110411
  Serious: Yes (Other)
  Sender: FDA-Public Use
  Company Number: PHHY2010CA65133

PATIENT
  Sex: Female

DRUGS (11)
  1. CLOZARIL [Suspect]
     Indication: SCHIZOPHRENIA
     Dosage: 150 MG QAM + QHS
     Dates: start: 20100818, end: 20100902
  2. ASA [Concomitant]
     Indication: HYPERTENSION
     Dosage: 81 MG QAM
  3. DIVALPROEX SODIUM [Concomitant]
     Dosage: 500 MG PO QAM + 750 MG PO QHS
  4. LASIX [Concomitant]
     Dosage: 20 MG PO QAM
  5. LORAZEPAM [Concomitant]
     Dosage: 01 MG QHS
     Route: 048
  6. METFORMIN HCL [Concomitant]
     Indication: TYPE 2 DIABETES MELLITUS
     Dosage: 500 MG BID
     Route: 048
  7. OLANZAPINE [Concomitant]
     Dosage: 5 MG QHS
     Route: 048
  8. PANTOPRAZOLE [Concomitant]
     Dosage: 40 MG  QAM
     Route: 048
  9. PROCYCLIDINE HYDROCHLORIDE 2MG TAB [Concomitant]
     Dosage: 5 MG  BID
     Route: 048
  10. RAMIPRIL [Concomitant]
     Indication: HYPERTENSION
     Dosage: 5 MG QAM
     Route: 048
  11. CRESTOR [Concomitant]
     Indication: HYPERTENSION
     Dosage: 10 MG QAM
     Route: 048

REACTIONS (5)
  - COGWHEEL RIGIDITY [None]
  - FALL [None]
  - GAIT DISTURBANCE [None]
  - NECK PAIN [None]
  - TREMOR [None]
